FAERS Safety Report 8479847-0 (Version None)
Quarter: 2012Q2

REPORT INFORMATION
  Report Type: 
  Country: None (occurrence: None)
  Receive Date: 20120629
  Receipt Date: 20120621
  Transmission Date: 20120825
  Serious: Yes (Hospitalization, Other)
  Sender: FDA-Public Use
  Company Number: US-US-EMD SERONO, INC.-7121108

PATIENT
  Sex: Female
  Weight: 68 kg

DRUGS (6)
  1. ADDERALL 5 [Concomitant]
     Indication: ASTHENIA
  2. UNSPECIFIED BLOOD PRESSURE MEDICATION [Concomitant]
     Indication: BLOOD PRESSURE ABNORMAL
  3. LAMICTAL [Concomitant]
     Indication: SEIZURE LIKE PHENOMENA
  4. KEPPRA [Concomitant]
     Indication: CONVULSION
     Dates: start: 20120101
  5. REBIF [Suspect]
     Indication: MULTIPLE SCLEROSIS
     Route: 058
     Dates: start: 20030101
  6. DEPAKOTE [Concomitant]
     Indication: CONVULSION
     Dates: end: 20120101

REACTIONS (4)
  - MULTIPLE SCLEROSIS [None]
  - PANCREATITIS [None]
  - PANCREATIC CYST [None]
  - EMOTIONAL DISTRESS [None]
